FAERS Safety Report 16325694 (Version 2)
Quarter: 2019Q3

REPORT INFORMATION
  Report Type: Spontaneous
  Country: PL (occurrence: PL)
  Receive Date: 20190517
  Receipt Date: 20190709
  Transmission Date: 20191004
  Serious: Yes (Other)
  Sender: FDA-Public Use
  Company Number: PL-MYLANLABS-2019M1045661

PATIENT
  Age: 30 Year
  Sex: Female

DRUGS (18)
  1. MITOXANTRONE [Concomitant]
     Active Substance: MITOXANTRONE HYDROCHLORIDE
  2. CLADRIBINE. [Concomitant]
     Active Substance: CLADRIBINE
  3. VORICONAZOLE. [Suspect]
     Active Substance: VORICONAZOLE
     Indication: PROPHYLAXIS
     Dosage: UNK
     Route: 042
  4. AZITHROMYCINE [Concomitant]
     Active Substance: AZITHROMYCIN
  5. AMPHOTERICINUM B [Concomitant]
     Active Substance: AMPHOTERICIN B
  6. AZACITIDINE. [Concomitant]
     Active Substance: AZACITIDINE
  7. TREOSULFAN [Concomitant]
     Active Substance: TREOSULFAN
  8. POSACONAZOLE [Concomitant]
     Active Substance: POSACONAZOLE
  9. METHYLPREDNISOLONE. [Concomitant]
     Active Substance: METHYLPREDNISOLONE
  10. DAUNORUBICIN [Concomitant]
     Active Substance: DAUNORUBICIN
  11. VORICONAZOLE. [Suspect]
     Active Substance: VORICONAZOLE
     Indication: BRONCHOPULMONARY ASPERGILLOSIS
  12. CYCLOPHOSPHAMIDE. [Concomitant]
     Active Substance: CYCLOPHOSPHAMIDE
  13. BUSULFAN. [Concomitant]
     Active Substance: BUSULFAN
  14. FLUDARABINE [Concomitant]
     Active Substance: FLUDARABINE PHOSPHATE
  15. TACROLIMUS. [Concomitant]
     Active Substance: TACROLIMUS
  16. MONTELUKAST [Concomitant]
     Active Substance: MONTELUKAST SODIUM
  17. CYTARABINE. [Concomitant]
     Active Substance: CYTARABINE
  18. FLUCONAZOLE. [Concomitant]
     Active Substance: FLUCONAZOLE

REACTIONS (1)
  - Drug ineffective [Unknown]
